FAERS Safety Report 8780305 (Version 1)
Quarter: 2012Q4

REPORT INFORMATION
  Report Type: Spontaneous
  Country: US (occurrence: None)
  Receive Date: 20120905
  Receipt Date: 20120905
  Transmission Date: 20130627
  Serious: Yes (Hospitalization)
  Sender: FDA-Public Use
  Company Number: None

PATIENT
  Sex: Female
  Weight: 77.1 kg

DRUGS (2)
  1. DABIGATRAN [Suspect]
     Route: 048
     Dates: start: 201106
  2. CLOPIDOGREL [Suspect]
     Route: 048

REACTIONS (3)
  - Epistaxis [None]
  - Contusion [None]
  - Lower gastrointestinal haemorrhage [None]
